FAERS Safety Report 7034389-4 (Version None)
Quarter: 2010Q4

REPORT INFORMATION
  Report Type: 
  Country: None (occurrence: None)
  Receive Date: 20101008
  Receipt Date: 20101001
  Transmission Date: 20110411
  Serious: Yes (Hospitalization)
  Sender: FDA-Public Use
  Company Number: FR-JNJFOC-20101000389

PATIENT
  Age: 33 Year
  Sex: Female

DRUGS (5)
  1. TAVANIC [Suspect]
     Indication: MENINGITIS TUBERCULOUS
     Route: 065
  2. RIMIFON [Concomitant]
     Route: 065
  3. KALETRA [Concomitant]
     Indication: ACQUIRED IMMUNODEFICIENCY SYNDROME
     Route: 065
  4. TRUVADA [Concomitant]
     Indication: ACQUIRED IMMUNODEFICIENCY SYNDROME
     Route: 065
  5. RIFATER [Concomitant]
     Indication: MENINGITIS TUBERCULOUS
     Route: 065

REACTIONS (2)
  - ARTHRALGIA [None]
  - CARPAL TUNNEL SYNDROME [None]
